FAERS Safety Report 14909019 (Version 1)
Quarter: 2018Q2

REPORT INFORMATION
  Report Type: Spontaneous
  Country: US (occurrence: US)
  Receive Date: 20180517
  Receipt Date: 20180517
  Transmission Date: 20180711
  Serious: No
  Sender: FDA-Public Use
  Company Number: US-PFIZER INC-2018199180

PATIENT
  Age: 43 Year
  Sex: Female

DRUGS (3)
  1. PARAPLATIN [Concomitant]
     Active Substance: CARBOPLATIN
     Dosage: UNK
  2. CARBOPLATIN. [Concomitant]
     Active Substance: CARBOPLATIN
     Dosage: UNK
  3. DOCETAXEL. [Suspect]
     Active Substance: DOCETAXEL
     Indication: BREAST CANCER FEMALE
     Dosage: 115 MG, EVERY 3 WEEKS (6 CYCLES)
     Dates: start: 20071128, end: 20080312

REACTIONS (4)
  - Hair colour changes [Unknown]
  - Hair texture abnormal [Unknown]
  - Alopecia [Unknown]
  - Hair disorder [Unknown]
